FAERS Safety Report 24134923 (Version 1)
Quarter: 2024Q3

REPORT INFORMATION
  Report Type: Spontaneous
  Country: FR (occurrence: FR)
  Receive Date: 20240725
  Receipt Date: 20240725
  Transmission Date: 20241016
  Serious: Yes (Hospitalization)
  Sender: SANDOZ
  Company Number: None

PATIENT
  Age: 21 Year
  Sex: Male

DRUGS (5)
  1. ALCOHOL [Suspect]
     Active Substance: ALCOHOL
     Indication: Product used for unknown indication
     Dosage: 1/2 BOUTEILLE VODKA ET 2X33CL BI?RE
     Route: 048
     Dates: start: 20240614, end: 20240614
  2. ALCOHOL [Suspect]
     Active Substance: ALCOHOL
     Dosage: UNK
     Route: 048
  3. CANNABIS SATIVA SUBSP. INDICA TOP [Suspect]
     Active Substance: CANNABIS SATIVA SUBSP. INDICA TOP
     Indication: Product used for unknown indication
     Dosage: UNK
     Route: 055
  4. LOXAPINE [Suspect]
     Active Substance: LOXAPINE
     Indication: Product used for unknown indication
     Dosage: 25 MG
     Route: 048
     Dates: start: 20240614, end: 20240614
  5. QUETIAPINE [Suspect]
     Active Substance: QUETIAPINE
     Indication: Product used for unknown indication
     Dosage: QU?TIAPINE 300MG COMPRIM?S- 6 COMPRIM?S
     Route: 048
     Dates: start: 20240614, end: 20240614

REACTIONS (6)
  - Toxicity to various agents [Recovered/Resolved]
  - Agitation [Recovering/Resolving]
  - Depressed mood [Not Recovered/Not Resolved]
  - Drug abuse [Not Recovered/Not Resolved]
  - Coma scale abnormal [Recovered/Resolved]
  - Suicidal ideation [Not Recovered/Not Resolved]

NARRATIVE: CASE EVENT DATE: 20240614
